FAERS Safety Report 23387350 (Version 2)
Quarter: 2024Q1

REPORT INFORMATION
  Report Type: Report from Study
  Country: BR (occurrence: BR)
  Receive Date: 20240110
  Receipt Date: 20240117
  Transmission Date: 20240410
  Serious: Yes (Other)
  Sender: FDA-Public Use
  Company Number: BR-JNJFOC-20240105849

PATIENT
  Age: 65 Year
  Sex: Female
  Weight: 102 kg

DRUGS (3)
  1. SIMPONI [Suspect]
     Active Substance: GOLIMUMAB
     Indication: Rheumatoid arthritis
     Route: 065
     Dates: start: 20170817, end: 202302
  2. SIMPONI [Suspect]
     Active Substance: GOLIMUMAB
  3. SIMPONI [Suspect]
     Active Substance: GOLIMUMAB

REACTIONS (4)
  - Hepatic steatosis [Unknown]
  - Bedridden [Unknown]
  - Pain [Unknown]
  - Drug ineffective [Unknown]
